FAERS Safety Report 5893300-X (Version None)
Quarter: 2008Q3

REPORT INFORMATION
  Report Type: 
  Country: None (occurrence: None)
  Receive Date: 20080923
  Receipt Date: 20080916
  Transmission Date: 20090109
  Serious: Yes (Other)
  Sender: FDA-Public Use
  Company Number: B0498119A

PATIENT
  Age: 32 Year
  Sex: Female

DRUGS (1)
  1. HEPTODIN [Suspect]
     Dosage: 100MG PER DAY
     Route: 065
     Dates: start: 20051101

REACTIONS (2)
  - ABORTION INDUCED [None]
  - PATERNAL DRUGS AFFECTING FOETUS [None]
